FAERS Safety Report 15400344 (Version 1)
Quarter: 2018Q3

REPORT INFORMATION
  Report Type: Spontaneous
  Country: LK (occurrence: LK)
  Receive Date: 20180919
  Receipt Date: 20180919
  Transmission Date: 20181010
  Serious: Yes (Other)
  Sender: FDA-Public Use
  Company Number: LK-EDENBRIDGE PHARMACEUTICALS, LLC-LK-2018EDE000268

PATIENT
  Age: 30 Year
  Sex: Male

DRUGS (4)
  1. PRAZOSIN. [Concomitant]
     Active Substance: PRAZOSIN
     Indication: MESANGIOPROLIFERATIVE GLOMERULONEPHRITIS
     Dosage: UNK
  2. PREDNISOLONE SODIUM PHOSPHATE. [Suspect]
     Active Substance: PREDNISOLONE SODIUM PHOSPHATE
     Dosage: UNK, TAPERED
  3. PREDNISOLONE SODIUM PHOSPHATE. [Suspect]
     Active Substance: PREDNISOLONE SODIUM PHOSPHATE
     Indication: MESANGIOPROLIFERATIVE GLOMERULONEPHRITIS
     Dosage: 0.5 MG/KG, QD
  4. BISOPROLOL [Concomitant]
     Active Substance: BISOPROLOL
     Indication: MESANGIOPROLIFERATIVE GLOMERULONEPHRITIS
     Dosage: UNK

REACTIONS (3)
  - Cytomegalovirus infection [Recovering/Resolving]
  - Aspergillus infection [Recovering/Resolving]
  - Disseminated tuberculosis [Recovering/Resolving]
